FAERS Safety Report 9361365 (Version 1)
Quarter: 2013Q2

REPORT INFORMATION
  Report Type: Spontaneous
  Country: DE (occurrence: DE)
  Receive Date: 20130621
  Receipt Date: 20130621
  Transmission Date: 20140414
  Serious: Yes (Death, Other)
  Sender: FDA-Public Use
  Company Number: DE-JNJFOC-20130611731

PATIENT
  Sex: 0

DRUGS (4)
  1. REOPRO [Suspect]
     Indication: EMBOLISM
     Dosage: 0.25 MG/KG OF BODY WEIGHT
     Route: 042
  2. CLEXANE [Concomitant]
     Indication: ANTICOAGULANT THERAPY
     Route: 042
  3. ASPISOL [Concomitant]
     Indication: ANTICOAGULANT THERAPY
     Dosage: 250 TO 500 MG
     Route: 042
  4. PLAVIX [Concomitant]
     Indication: ANTICOAGULANT THERAPY
     Dosage: 250 TO 500 MG
     Route: 048

REACTIONS (2)
  - Death [Fatal]
  - Infarction [Unknown]
